FAERS Safety Report 6419504-5 (Version None)
Quarter: 2009Q4

REPORT INFORMATION
  Report Type: 
  Country: None (occurrence: None)
  Receive Date: 20091029
  Receipt Date: 20091020
  Transmission Date: 20100525
  Serious: Yes (Other)
  Sender: FDA-Public Use
  Company Number: US-JNJFOC-20090903315

PATIENT
  Sex: Female
  Weight: 65.32 kg

DRUGS (1)
  1. LEVAQUIN [Suspect]
     Indication: INFLUENZA
     Dosage: FOR FIVE DAYS
     Route: 048
     Dates: start: 20090610

REACTIONS (8)
  - INCREASED TENDENCY TO BRUISE [None]
  - MUSCLE CONTRACTIONS INVOLUNTARY [None]
  - MUSCLE SPASMS [None]
  - MUSCLE TWITCHING [None]
  - PAIN IN EXTREMITY [None]
  - PARAESTHESIA [None]
  - SENSORY LOSS [None]
  - TREMOR [None]
